FAERS Safety Report 6263474-X (Version None)
Quarter: 2009Q3

REPORT INFORMATION
  Report Type: 
  Country: None (occurrence: None)
  Receive Date: 20090710
  Receipt Date: 20090518
  Transmission Date: 20100115
  Serious: No
  Sender: FDA-Public Use
  Company Number: A0783529A

PATIENT
  Age: 81 Year
  Sex: Female

DRUGS (12)
  1. FLOVENT [Suspect]
     Indication: BRONCHITIS
     Dosage: 2PUFF TWICE PER DAY
     Route: 055
     Dates: start: 20090504, end: 20090510
  2. COMBIVENT [Concomitant]
  3. METOPROLOL [Concomitant]
  4. LISINOPRIL [Concomitant]
  5. PRILOSEC [Concomitant]
  6. HYDROCHLOROTHIAZIDE [Concomitant]
  7. ASPIRIN [Concomitant]
  8. CALCIUM WITH VITAMIN D [Concomitant]
  9. LACTULOSE [Concomitant]
  10. LIPITOR [Concomitant]
  11. ZADITOR [Concomitant]
  12. LORATADINE [Concomitant]

REACTIONS (1)
  - DYSPHONIA [None]
